FAERS Safety Report 6986525-3 (Version None)
Quarter: 2010Q3

REPORT INFORMATION
  Report Type: 
  Country: None (occurrence: None)
  Receive Date: 20100827
  Receipt Date: 20091211
  Transmission Date: 20110219
  Serious: Yes (Other)
  Sender: FDA-Public Use
  Company Number: AMAG200900074

PATIENT
  Age: 87 Year
  Sex: Female
  Weight: 76.5 kg

DRUGS (14)
  1. FERAHEME [Suspect]
     Indication: IRON DEFICIENCY ANAEMIA
     Dosage: 510 MG, SINGLE, INTRAVENOUS
     Route: 042
     Dates: start: 20091123, end: 20091123
  2. COUMADIN [Concomitant]
  3. LOVAZA [Concomitant]
  4. RENVELA [Concomitant]
  5. XANAX [Concomitant]
  6. ZANTAC [Concomitant]
  7. LORTAB (HYDROCODONE BITARTRATE, PARACETAMOL, PROMETHAZINE HYDROCHLORID [Concomitant]
  8. VITAMIN E (TOCOPHERYL ACETATE) [Concomitant]
  9. VITAMIN D [Concomitant]
  10. IMDUR [Concomitant]
  11. TOPROL-XL [Concomitant]
  12. OMACOR [Concomitant]
  13. FISH OIL (FISH OIL) [Concomitant]
  14. SODIUM BICARBONATE IN PLASTIC CONTAINER [Concomitant]

REACTIONS (4)
  - DIZZINESS [None]
  - FEELING ABNORMAL [None]
  - HYPOTENSION [None]
  - MALAISE [None]
